FAERS Safety Report 4539419-7 (Version None)
Quarter: 2004Q4

REPORT INFORMATION
  Report Type: 
  Country: None (occurrence: None)
  Receive Date: 20041222
  Receipt Date: 20041208
  Transmission Date: 20050328
  Serious: Yes (Life-Threatening, Hospitalization)
  Sender: FDA-Public Use
  Company Number: 2004AP05302

PATIENT
  Age: 61 Year
  Sex: Female

DRUGS (18)
  1. PULMICORT [Suspect]
     Indication: ASTHMA
     Dosage: 800 UG DAILY IH
     Route: 055
     Dates: start: 20040204, end: 20040823
  2. PULMICORT [Suspect]
     Indication: ASTHMA
     Dates: start: 20041112
  3. ACCOLATE [Concomitant]
  4. EUTENSIN [Concomitant]
  5. GLUCONSAN K [Concomitant]
  6. PARIET [Concomitant]
  7. THEO-DUR [Concomitant]
  8. LIVALO [Concomitant]
  9. BEROTEC [Concomitant]
  10. HOKUNALIN [Concomitant]
  11. PURSENNID [Concomitant]
  12. DIGOXIN [Concomitant]
  13. LUVOX [Concomitant]
  14. SILECE [Concomitant]
  15. GASCON [Concomitant]
  16. COLIOPAN [Concomitant]
  17. MOBIC [Concomitant]
  18. ALDACTONE [Concomitant]

REACTIONS (3)
  - CARDIAC FAILURE [None]
  - CARDIO-RESPIRATORY ARREST [None]
  - PULMONARY TUBERCULOSIS [None]
